FAERS Safety Report 17345408 (Version 2)
Quarter: 2020Q1

REPORT INFORMATION
  Report Type: Report from Study
  Country: US (occurrence: US)
  Receive Date: 20200129
  Receipt Date: 20200210
  Transmission Date: 20200409
  Serious: No
  Sender: FDA-Public Use
  Company Number: NVSC2020US021624

PATIENT
  Age: 37 Year
  Sex: Male

DRUGS (1)
  1. COSENTYX [Suspect]
     Active Substance: SECUKINUMAB
     Indication: PSORIASIS
     Dosage: 300 MG, Q4W (INJECT 2 PENS (300 MG) SUBCUTANEOUSLY ONCE EVERY 4 WEEKS)
     Route: 058

REACTIONS (2)
  - Psoriasis [Unknown]
  - Injection site bruising [Unknown]
